FAERS Safety Report 5245959-8 (Version None)
Quarter: 2007Q1

REPORT INFORMATION
  Report Type: 
  Country: None (occurrence: None)
  Receive Date: 20070222
  Receipt Date: 20070207
  Transmission Date: 20070707
  Serious: Yes (Death, Disabling)
  Sender: FDA-Public Use
  Company Number: 02100-EUR-07-0004

PATIENT
  Age: 82 Year
  Sex: Male

DRUGS (7)
  1. CILOSTAZOL [Suspect]
     Indication: ARTERIAL BYPASS OPERATION
     Dosage: 200 MG ORAL
     Route: 048
     Dates: start: 20070118, end: 20070120
  2. CILOSTAZOL [Suspect]
     Indication: CORONARY ANGIOPLASTY
     Dosage: 200 MG ORAL
     Route: 048
     Dates: start: 20070118, end: 20070120
  3. CILOSTAZOL [Suspect]
     Indication: PERIPHERAL ARTERIAL OCCLUSIVE DISEASE
     Dosage: 200 MG ORAL
     Route: 048
     Dates: start: 20070118, end: 20070120
  4. AMIODARONE [Concomitant]
  5. TORSEMIDE [Concomitant]
  6. LISINOPRIL [Concomitant]
  7. FLUTICASONE PROPIONATE W/SALMETEROL XINAFOATE [Concomitant]

REACTIONS (4)
  - ABDOMINAL PAIN [None]
  - CARDIOVASCULAR INSUFFICIENCY [None]
  - GASTROINTESTINAL HAEMORRHAGE [None]
  - INTESTINAL ISCHAEMIA [None]
